FAERS Safety Report 23702101 (Version 2)
Quarter: 2024Q2

REPORT INFORMATION
  Report Type: Spontaneous
  Country: US (occurrence: US)
  Receive Date: 20240403
  Receipt Date: 20240502
  Transmission Date: 20240716
  Serious: Yes (Other)
  Sender: FDA-Public Use
  Company Number: US-BAYER-2024A048488

PATIENT
  Age: 84 Year
  Sex: Male

DRUGS (4)
  1. ASPIRIN [Suspect]
     Active Substance: ASPIRIN
  2. AMLODIPINE [Suspect]
     Active Substance: AMLODIPINE BESYLATE
  3. ATORVASTATIN [Suspect]
     Active Substance: ATORVASTATIN
  4. MIRTAZAPINE [Suspect]
     Active Substance: MIRTAZAPINE

REACTIONS (2)
  - Gastrointestinal haemorrhage [None]
  - Anaemia [None]
